FAERS Safety Report 4504759-4 (Version None)
Quarter: 2004Q4

REPORT INFORMATION
  Report Type: 
  Country: None (occurrence: None)
  Receive Date: 20041118
  Receipt Date: 20041115
  Transmission Date: 20050328
  Serious: Yes (Death)
  Sender: FDA-Public Use
  Company Number: DE-MERCK-0411DEU00325

PATIENT
  Age: 60 Year
  Sex: Male
  Weight: 123 kg

DRUGS (3)
  1. VIOXX [Suspect]
     Indication: RHEUMATOID ARTHRITIS
     Route: 048
     Dates: start: 20030301, end: 20030707
  2. INSULIN [Concomitant]
     Route: 065
  3. LEFLUNOMIDE [Concomitant]
     Route: 065
     Dates: start: 20030101

REACTIONS (2)
  - CARDIAC ARREST [None]
  - SUDDEN DEATH [None]
